FAERS Safety Report 7249332-2 (Version None)
Quarter: 2011Q1

REPORT INFORMATION
  Report Type: 
  Country: None (occurrence: None)
  Receive Date: 20110128
  Receipt Date: 20101215
  Transmission Date: 20110831
  Serious: Yes (Hospitalization, Other)
  Sender: FDA-Public Use
  Company Number: US-BAYER-2010-005321

PATIENT
  Sex: Female

DRUGS (6)
  1. TRAMADOL HCL [Concomitant]
  2. UNCODEABLE ^UNCLASSIFIABLE^ [Concomitant]
  3. AVELOX [Suspect]
     Indication: PRODUCT USED FOR UNKNOWN INDICATION
     Dosage: 400 MG, QD
     Route: 048
     Dates: start: 20100501
  4. UNCODEABLE ^UNCLASSIFIABLE^ [Concomitant]
  5. KLONOPIN [Concomitant]
  6. PRIMIDONE [Concomitant]

REACTIONS (12)
  - DYSPNOEA [None]
  - GASTRIC HAEMORRHAGE [None]
  - ABDOMINAL PAIN UPPER [None]
  - BACK PAIN [None]
  - NECK INJURY [None]
  - VISUAL IMPAIRMENT [None]
  - OEDEMA PERIPHERAL [None]
  - HYPERSENSITIVITY [None]
  - EPISTAXIS [None]
  - PHARYNGEAL OEDEMA [None]
  - SWELLING FACE [None]
  - EYE SWELLING [None]
